FAERS Safety Report 24283909 (Version 1)
Quarter: 2024Q3

REPORT INFORMATION
  Report Type: Spontaneous
  Country: DK (occurrence: DK)
  Receive Date: 20240905
  Receipt Date: 20240905
  Transmission Date: 20241017
  Serious: Yes (Other)
  Sender: NOVO NORDISK
  Company Number: None

PATIENT
  Age: 39 Year
  Sex: Female

DRUGS (3)
  1. WEGOVY [Suspect]
     Active Substance: SEMAGLUTIDE
     Indication: Overweight
     Dosage: 1 MG, QW
     Route: 058
     Dates: start: 20220811, end: 20240814
  2. GABAPENTIN [Concomitant]
     Active Substance: GABAPENTIN
     Indication: Pain
     Dosage: 1200 MG, QD (300 MG MORNING, 300 MG NOON AND 600 MG EVENING )
     Route: 048
     Dates: start: 20220609
  3. LEVOTHYROXINE [Concomitant]
     Active Substance: LEVOTHYROXINE\LEVOTHYROXINE SODIUM
     Indication: Hypothyroidism
     Dosage: UNK
     Route: 048
     Dates: start: 20180704

REACTIONS (1)
  - Optic ischaemic neuropathy [Recovering/Resolving]

NARRATIVE: CASE EVENT DATE: 20240109
